FAERS Safety Report 8489213-X (Version None)
Quarter: 2012Q3

REPORT INFORMATION
  Report Type: 
  Country: None (occurrence: None)
  Receive Date: 20120705
  Receipt Date: 20120625
  Transmission Date: 20120928
  Serious: Yes (Hospitalization)
  Sender: FDA-Public Use
  Company Number: FR-ASTRAZENECA-2012SE43154

PATIENT
  Age: 29 Year
  Sex: Female

DRUGS (2)
  1. ENTOCORT EC [Suspect]
     Indication: CROHN'S DISEASE
     Route: 048
     Dates: start: 20111201
  2. RIFAMPIN AND ISONIAZID [Suspect]
     Dosage: 300 MG / 150 MG
     Route: 048
     Dates: start: 20120510, end: 20120528

REACTIONS (1)
  - PANCREATITIS ACUTE [None]
